FAERS Safety Report 13843820 (Version 1)
Quarter: 2017Q3

REPORT INFORMATION
  Report Type: Spontaneous
  Country: US (occurrence: US)
  Receive Date: 20170808
  Receipt Date: 20170808
  Transmission Date: 20171127
  Serious: No
  Sender: FDA-Public Use
  Company Number: US-BAYER-2017-151198

PATIENT
  Sex: Male

DRUGS (1)
  1. MIRALAX [Suspect]
     Active Substance: POLYETHYLENE GLYCOL 3350
     Indication: COLONOSCOPY
     Dosage: 238G OF MIRALAX MIXED INTO 2- 32OZ PORTIONS OF A LIQUID
     Route: 048

REACTIONS (3)
  - Inappropriate prescribing [None]
  - Off label use [Unknown]
  - Circumstance or information capable of leading to medication error [Unknown]
